FAERS Safety Report 10623501 (Version 8)
Quarter: 2015Q4

REPORT INFORMATION
  Report Type: Report from Study
  Country: US (occurrence: US)
  Receive Date: 20141203
  Receipt Date: 20151005
  Transmission Date: 20160304
  Serious: Yes (Other)
  Sender: FDA-Public Use
  Company Number: US-SA-2014SA149645

PATIENT
  Age: 63 Year
  Sex: Male
  Weight: 68.03 kg

DRUGS (9)
  1. FLUDROCORTISONE [Concomitant]
     Active Substance: FLUDROCORTISONE
     Route: 048
     Dates: start: 20140702
  2. GABAPENTIN. [Concomitant]
     Active Substance: GABAPENTIN
     Dosage: 100 MG
     Route: 048
     Dates: start: 20141216
  3. CITALOPRAM [Concomitant]
     Active Substance: CITALOPRAM HYDROBROMIDE
     Dosage: 20 MG
     Route: 048
     Dates: start: 20141216
  4. AUBAGIO [Suspect]
     Active Substance: TERIFLUNOMIDE
     Indication: MULTIPLE SCLEROSIS
     Route: 048
     Dates: start: 20140924
  5. BACLOFEN. [Concomitant]
     Active Substance: BACLOFEN
     Dosage: 10 MG
     Dates: start: 20141107
  6. VITAMIN D3 [Concomitant]
     Active Substance: CHOLECALCIFEROL
     Route: 048
     Dates: start: 20141107
  7. OXCARBAZEPINE. [Concomitant]
     Active Substance: OXCARBAZEPINE
     Dosage: 1 TAB IN MORNING AND 1 IN EVENING
     Route: 048
     Dates: start: 20141113
  8. LIPITOR [Concomitant]
     Active Substance: ATORVASTATIN CALCIUM
  9. OXYBUTYNIN [Concomitant]
     Active Substance: OXYBUTYNIN
     Route: 048
     Dates: start: 20141107

REACTIONS (12)
  - Blood sodium decreased [Unknown]
  - Muscle spasticity [Not Recovered/Not Resolved]
  - Cystitis [Recovered/Resolved]
  - Insomnia [Unknown]
  - Erythema [Recovered/Resolved]
  - Herpes simplex [Recovered/Resolved]
  - Pain in extremity [Recovered/Resolved]
  - Muscle spasms [Unknown]
  - Abdominal pain [Unknown]
  - Cancer surgery [Unknown]
  - Pain [Recovered/Resolved]
  - Ill-defined disorder [Unknown]

NARRATIVE: CASE EVENT DATE: 201410
